FAERS Safety Report 6636234-5 (Version None)
Quarter: 2010Q1

REPORT INFORMATION
  Report Type: 
  Country: None (occurrence: None)
  Receive Date: 20100316
  Receipt Date: 20100304
  Transmission Date: 20100710
  Serious: Yes (Other)
  Sender: FDA-Public Use
  Company Number: GB-PFIZER INC-2010030941

PATIENT
  Age: 45 Year
  Sex: Female

DRUGS (1)
  1. AROMASIN [Suspect]
     Dosage: UNK

REACTIONS (1)
  - STEVENS-JOHNSON SYNDROME [None]
